FAERS Safety Report 16209094 (Version 2)
Quarter: 2019Q2

REPORT INFORMATION
  Report Type: Spontaneous
  Country: US (occurrence: US)
  Receive Date: 20190417
  Receipt Date: 20190424
  Transmission Date: 20190711
  Serious: No
  Sender: FDA-Public Use
  Company Number: US-FRESENIUS MEDICAL CARE RENAL THERAPIES GROUP-FMC-1904-000449

PATIENT
  Age: 37 Year
  Sex: Male
  Weight: 118 kg

DRUGS (1)
  1. DELFLEX [Suspect]
     Active Substance: CALCIUM CHLORIDE\DEXTROSE\MAGNESIUM CHLORIDE\SODIUM CHLORIDE\SODIUM LACTATE
     Indication: END STAGE RENAL DISEASE
     Route: 033

REACTIONS (4)
  - Dyspnoea [Recovering/Resolving]
  - Product dose omission [Recovered/Resolved]
  - Swelling [Recovering/Resolving]
  - Fluid imbalance [Recovering/Resolving]

NARRATIVE: CASE EVENT DATE: 20190410
